FAERS Safety Report 4455631-X (Version None)
Quarter: 2004Q3

REPORT INFORMATION
  Report Type: 
  Country: None (occurrence: None)
  Receive Date: 20040917
  Receipt Date: 20040901
  Transmission Date: 20050211
  Serious: Yes (Hospitalization)
  Sender: FDA-Public Use
  Company Number: US_0409105250

PATIENT
  Age: 71 Year
  Sex: Male
  Weight: 71 kg

DRUGS (4)
  1. HUMALOG [Suspect]
     Indication: DIABETES MELLITUS
     Dosage: 16 U DAY
  2. HUMALOG MIX 75/25 [Suspect]
     Indication: DIABETES MELLITUS
     Dosage: 40 U IN THE MORNING
     Dates: start: 20040101
  3. HUMULIN 70/30 [Suspect]
     Indication: DIABETES MELLITUS
     Dates: end: 20040101
  4. LANTUS [Concomitant]

REACTIONS (5)
  - ARTHRITIS [None]
  - BONE DISORDER [None]
  - NASOPHARYNGITIS [None]
  - PHARMACEUTICAL PRODUCT COMPLAINT [None]
  - SPINAL DISORDER [None]
